FAERS Safety Report 7642115-0 (Version None)
Quarter: 2011Q3

REPORT INFORMATION
  Report Type: 
  Country: None (occurrence: None)
  Receive Date: 20110728
  Receipt Date: 20110715
  Transmission Date: 20111222
  Serious: Yes (Other)
  Sender: FDA-Public Use
  Company Number: CA-ELI_LILLY_AND_COMPANY-CA201107004605

PATIENT
  Age: 69 Year
  Sex: Female

DRUGS (5)
  1. LOVAZA [Concomitant]
  2. MAGNESIUM [Concomitant]
  3. FORTEO [Suspect]
     Indication: OSTEOPOROSIS
     Dosage: 20 UG, QD
     Route: 058
     Dates: start: 20100809
  4. VITAMIN D [Concomitant]
  5. CALCIUM ACETATE [Concomitant]

REACTIONS (2)
  - NEOPLASM [None]
  - HYSTERECTOMY [None]
